FAERS Safety Report 14245658 (Version 2)
Quarter: 2018Q1

REPORT INFORMATION
  Report Type: Report from Study
  Country: None (occurrence: CA)
  Receive Date: 20171203
  Receipt Date: 20180114
  Transmission Date: 20180508
  Serious: Yes (Hospitalization)
  Sender: FDA-Public Use
  Company Number: CA-ABBVIE-17K-028-2132955-00

PATIENT
  Age: 13 Year
  Sex: Male
  Weight: 45.8 kg

DRUGS (5)
  1. HUMIRA [Suspect]
     Active Substance: ADALIMUMAB
     Route: 058
     Dates: start: 2017
  2. HUMIRA [Suspect]
     Active Substance: ADALIMUMAB
     Indication: CROHN^S DISEASE
     Route: 058
     Dates: start: 20170131, end: 2017
  3. SALOFALK [Concomitant]
     Active Substance: MESALAMINE
     Indication: INFLAMMATORY BOWEL DISEASE
     Route: 054
     Dates: start: 20171017, end: 20171101
  4. HUMIRA [Suspect]
     Active Substance: ADALIMUMAB
     Route: 058
     Dates: start: 20171018, end: 2017
  5. PENTASA [Concomitant]
     Active Substance: MESALAMINE
     Indication: INFLAMMATORY BOWEL DISEASE
     Route: 048
     Dates: start: 20171003

REACTIONS (9)
  - Crohn^s disease [Recovered/Resolved]
  - Gastrointestinal wall thickening [Unknown]
  - Haematochezia [Unknown]
  - Vomiting [Unknown]
  - Frequent bowel movements [Recovered/Resolved]
  - Intestinal mucosal atrophy [Unknown]
  - Pyrexia [Unknown]
  - Fatigue [Recovered/Resolved]
  - Intestinal dilatation [Unknown]

NARRATIVE: CASE EVENT DATE: 2017
